FAERS Safety Report 10779060 (Version 1)
Quarter: 2015Q1

REPORT INFORMATION
  Report Type: Spontaneous
  Country: MX (occurrence: None)
  Receive Date: 20150206
  Receipt Date: 20150206
  Transmission Date: 20150721
  Serious: Yes (Death, Other)
  Sender: FDA-Public Use
  Company Number: MX2015014588

PATIENT
  Age: 55 Year
  Sex: Male

DRUGS (6)
  1. TENOFOVIR DISOPROXIL FUMARATE [Suspect]
     Active Substance: TENOFOVIR DISOPROXIL FUMARATE
     Indication: HIV INFECTION
  2. EMTRICITABINE (EMTRICITABINE) UNKNOWN [Suspect]
     Active Substance: EMTRICITABINE
     Indication: HIV INFECTION
  3. ABACAVIR [Concomitant]
     Active Substance: ABACAVIR
  4. DEXAMETHASONE. [Concomitant]
     Active Substance: DEXAMETHASONE
  5. ATAZANAVIR W/RITONAVIR [Concomitant]
     Active Substance: ATAZANAVIR\RITONAVIR
  6. MARAVIROC (MARAVIROC) UNKNOWN [Suspect]
     Active Substance: MARAVIROC
     Indication: IMMUNE RECONSTITUTION INFLAMMATORY SYNDROME

REACTIONS (5)
  - Immune reconstitution inflammatory syndrome [None]
  - Atypical mycobacterium test positive [None]
  - Respiratory failure [None]
  - Demyelination [None]
  - Progressive multifocal leukoencephalopathy [None]
